FAERS Safety Report 24136322 (Version 1)
Quarter: 2024Q3

REPORT INFORMATION
  Report Type: Spontaneous
  Country: IT (occurrence: IT)
  Receive Date: 20240725
  Receipt Date: 20240725
  Transmission Date: 20241017
  Serious: Yes (Death)
  Sender: RANBAXY
  Company Number: IT-SUN PHARMACEUTICAL INDUSTRIES LTD-2024RR-458712

PATIENT
  Age: 7 Month
  Sex: Female

DRUGS (3)
  1. AZITHROMYCIN [Suspect]
     Active Substance: AZITHROMYCIN
     Indication: Bacterial infection
     Dosage: UNK
     Route: 065
  2. MEROPENEM [Suspect]
     Active Substance: MEROPENEM
     Indication: Bacterial infection
     Dosage: UNK
     Route: 065
  3. VANCOMYCIN [Suspect]
     Active Substance: VANCOMYCIN
     Indication: Bacterial infection
     Dosage: UNK
     Route: 065

REACTIONS (1)
  - Drug ineffective [Fatal]
